FAERS Safety Report 4726378-7 (Version None)
Quarter: 2005Q3

REPORT INFORMATION
  Report Type: 
  Country: None (occurrence: None)
  Receive Date: 20050727
  Receipt Date: 20050719
  Transmission Date: 20060218
  Serious: Yes (Life-Threatening, Hospitalization)
  Sender: FDA-Public Use
  Company Number: 2005-BP-10139RO

PATIENT
  Age: 54 Year
  Sex: Male

DRUGS (4)
  1. COCAINE HCL TOPICAL SOLUTION, 4% (COCAINE) [Suspect]
     Indication: ANAESTHESIA
     Dosage: 4 % SOLUTION (SEE TEXT, ONCE), TO
     Route: 061
     Dates: start: 20050615, end: 20050615
  2. LIDOCAINE 1% W/ EPINEPHRINE 1:200,000 [Suspect]
     Indication: LOCAL ANAESTHESIA
     Dosage: NR (SEE TEXT, ONCE), IN
     Dates: start: 20050615, end: 20050615
  3. UNSPECIFIED GENERAL ANESTHETICS [Suspect]
     Indication: ANAESTHESIA
     Dates: start: 20050615, end: 20050615
  4. UNSPECIFIED BETA BLOCKER [Suspect]
     Indication: HYPERTENSION
     Dates: start: 20050615, end: 20050615

REACTIONS (4)
  - CARDIAC ARREST [None]
  - DILATATION ATRIAL [None]
  - HYPERTENSION [None]
  - TRICUSPID VALVE INCOMPETENCE [None]
